FAERS Safety Report 17546992 (Version 1)
Quarter: 2020Q1

REPORT INFORMATION
  Report Type: Spontaneous
  Country: US (occurrence: US)
  Receive Date: 20200316
  Receipt Date: 20200316
  Transmission Date: 20200409
  Serious: No
  Sender: FDA-Public Use
  Company Number: US-PFIZER INC-2020112007

PATIENT
  Age: 26 Year
  Sex: Female
  Weight: 53 kg

DRUGS (5)
  1. XELJANZ [Suspect]
     Active Substance: TOFACITINIB CITRATE
     Indication: RHEUMATOID ARTHRITIS
  2. MICROGESTIN [Concomitant]
     Active Substance: ETHINYL ESTRADIOL\NORETHINDRONE ACETATE
     Dosage: 1 DF, DAILY
     Route: 048
  3. XELJANZ [Suspect]
     Active Substance: TOFACITINIB CITRATE
     Indication: PSORIATIC ARTHROPATHY
     Dosage: 11 MG, UNK
     Dates: start: 201809
  4. SULFASALAZINE. [Concomitant]
     Active Substance: SULFASALAZINE
  5. XELJANZ [Suspect]
     Active Substance: TOFACITINIB CITRATE
     Indication: PSORIATIC ARTHROPATHY

REACTIONS (6)
  - Back pain [Not Recovered/Not Resolved]
  - Arthralgia [Unknown]
  - Costochondritis [Not Recovered/Not Resolved]
  - Musculoskeletal stiffness [Unknown]
  - Skin disorder [Unknown]
  - Therapeutic response unexpected [Unknown]
